FAERS Safety Report 9419823 (Version 1)
Quarter: 2013Q3

REPORT INFORMATION
  Report Type: Spontaneous
  Country: DE (occurrence: CA)
  Receive Date: 20130725
  Receipt Date: 20130725
  Transmission Date: 20140515
  Serious: Yes (Hospitalization)
  Sender: FDA-Public Use
  Company Number: CA-FRI-1000046976

PATIENT
  Sex: Female

DRUGS (2)
  1. ROFLUMILAST [Suspect]
     Indication: CHRONIC OBSTRUCTIVE PULMONARY DISEASE
     Dosage: 1 DF
     Dates: start: 20130528
  2. ANTIBIOTICS [Concomitant]

REACTIONS (4)
  - Chest discomfort [Unknown]
  - Hypertension [Unknown]
  - Vibratory sense increased [Unknown]
  - Malaise [Unknown]
